FAERS Safety Report 23250147 (Version 1)
Quarter: 2023Q4

REPORT INFORMATION
  Report Type: Other
  Country: US (occurrence: None)
  Receive Date: 20231201
  Receipt Date: 20231201
  Transmission Date: 20240110
  Serious: Yes (Death, Other)
  Sender: FDA-Public Use
  Company Number: US-ROCHE-3465994

PATIENT

DRUGS (6)
  1. RITUXIMAB [Suspect]
     Active Substance: RITUXIMAB
     Indication: Follicular lymphoma
     Dosage: ON DAYS 1, 8, 15, AND 22 OF CYCLE 1, AND DAY 1 OF CYCLES 2 THROUGH 12.
     Route: 042
  2. RITUXIMAB [Suspect]
     Active Substance: RITUXIMAB
     Indication: Marginal zone lymphoma
  3. LENALIDOMIDE [Suspect]
     Active Substance: LENALIDOMIDE
     Indication: Follicular lymphoma
     Dosage: ON DAYS 1-21 OF CYCLE 1
     Route: 048
  4. LENALIDOMIDE [Suspect]
     Active Substance: LENALIDOMIDE
     Indication: Marginal zone lymphoma
     Dosage: ON DAYS 1-21 OF CYCLES 2 THROUGH 12 CYCLES
     Route: 048
  5. IBRUTINIB [Suspect]
     Active Substance: IBRUTINIB
     Indication: Follicular lymphoma
     Dosage: ON DAY 1 OF CYCLE 1 AND CONTINUED THROUGH 12 CYCLES
     Route: 048
  6. IBRUTINIB [Suspect]
     Active Substance: IBRUTINIB
     Indication: Marginal zone lymphoma

REACTIONS (33)
  - COVID-19 pneumonia [Fatal]
  - Ventricular arrhythmia [Unknown]
  - Upper gastrointestinal haemorrhage [Unknown]
  - Neutropenia [Unknown]
  - Leukopenia [Unknown]
  - Rash maculo-papular [Unknown]
  - Pneumonitis [Unknown]
  - Pneumonia [Unknown]
  - Anaemia [Unknown]
  - Pruritus [Unknown]
  - Diarrhoea [Unknown]
  - Dyspnoea [Unknown]
  - Fatigue [Unknown]
  - Dizziness [Unknown]
  - Arthralgia [Unknown]
  - Vision blurred [Unknown]
  - Chills [Unknown]
  - Constipation [Unknown]
  - Cough [Unknown]
  - Dry mouth [Unknown]
  - Dry skin [Unknown]
  - Oedema peripheral [Unknown]
  - Pyrexia [Unknown]
  - Headache [Unknown]
  - Mucosal inflammation [Unknown]
  - Myalgia [Unknown]
  - Nausea [Unknown]
  - Hypoaesthesia [Unknown]
  - Vomiting [Unknown]
  - Respiratory tract infection [Unknown]
  - Skin infection [Unknown]
  - Fungal infection [Unknown]
  - Atrial fibrillation [Unknown]
